FAERS Safety Report 6148460-2 (Version None)
Quarter: 2009Q2

REPORT INFORMATION
  Report Type: 
  Country: None (occurrence: None)
  Receive Date: 20090406
  Receipt Date: 20090406
  Transmission Date: 20091009
  Serious: No
  Sender: FDA-Public Use
  Company Number: None

PATIENT
  Age: 54 Year
  Sex: Male
  Weight: 78 kg

DRUGS (1)
  1. VYTORIN [Suspect]
     Indication: BLOOD CHOLESTEROL INCREASED
     Dosage: ONE A NITE ONCE BUCCAL
     Route: 002
     Dates: start: 20060101, end: 20090401

REACTIONS (2)
  - EXOSTOSIS [None]
  - GAIT DISTURBANCE [None]
